FAERS Safety Report 11973151 (Version 2)
Quarter: 2016Q1

REPORT INFORMATION
  Report Type: Report from Study
  Country: US (occurrence: US)
  Receive Date: 20160128
  Receipt Date: 20160229
  Transmission Date: 20160526
  Serious: Yes (Disabling, Other)
  Sender: FDA-Public Use
  Company Number: US-GILEAD-2016-0194931

PATIENT
  Age: 73 Year
  Sex: Female

DRUGS (1)
  1. RANOLAZINE [Suspect]
     Active Substance: RANOLAZINE
     Indication: ANGINA PECTORIS
     Dosage: 500 MG, UNK
     Route: 048
     Dates: end: 20160223

REACTIONS (7)
  - Embolism [Unknown]
  - Diabetes mellitus [Not Recovered/Not Resolved]
  - Macular degeneration [Not Recovered/Not Resolved]
  - Dementia [Not Recovered/Not Resolved]
  - Diabetic blindness [Not Recovered/Not Resolved]
  - Cardiovascular disorder [Not Recovered/Not Resolved]
  - Wrong technique in product usage process [Unknown]

NARRATIVE: CASE EVENT DATE: 2015
